FAERS Safety Report 6241154-4 (Version None)
Quarter: 2009Q2

REPORT INFORMATION
  Report Type: 
  Country: None (occurrence: None)
  Receive Date: 20090623
  Receipt Date: 20090616
  Transmission Date: 20091009
  Serious: Yes (Disabling)
  Sender: FDA-Public Use
  Company Number: DE-ABBOTT-09P-062-0580978-00

PATIENT
  Sex: Male

DRUGS (1)
  1. TRENANTONE [Suspect]
     Indication: PROSTATE CANCER
     Route: 058

REACTIONS (1)
  - INJECTION SITE NECROSIS [None]
